FAERS Safety Report 6312566-5 (Version None)
Quarter: 2009Q3

REPORT INFORMATION
  Report Type: 
  Country: None (occurrence: None)
  Receive Date: 20090817
  Receipt Date: 20090707
  Transmission Date: 20100115
  Serious: No
  Sender: FDA-Public Use
  Company Number: US-ALLERGAN-0909462US

PATIENT
  Sex: Female

DRUGS (4)
  1. SANCTURA XR [Suspect]
     Indication: HYPERTONIC BLADDER
     Dosage: HALF PILLS
     Route: 048
     Dates: start: 20090101
  2. LISINOPRIL [Concomitant]
  3. DILTIAZEM [Concomitant]
  4. ZETIA [Concomitant]

REACTIONS (1)
  - DRY MOUTH [None]
